FAERS Safety Report 4294973-8 (Version None)
Quarter: 2004Q1

REPORT INFORMATION
  Report Type: 
  Country: None (occurrence: None)
  Receive Date: 20040216
  Receipt Date: 20030327
  Transmission Date: 20041129
  Serious: Yes (Other)
  Sender: FDA-Public Use
  Company Number: US-GLAXOSMITHKLINE-A0402198A

PATIENT
  Age: 41 Year
  Sex: Female

DRUGS (2)
  1. LAMICTAL [Suspect]
     Dosage: 25MG PER DAY
     Route: 048
     Dates: start: 20030321, end: 20030324
  2. NO CONCURRENT MEDICATIONS [Concomitant]

REACTIONS (16)
  - BLISTER [None]
  - DERMATITIS EXFOLIATIVE [None]
  - DRUG ERUPTION [None]
  - MOUTH ULCERATION [None]
  - ORAL PAIN [None]
  - ORAL SOFT TISSUE DISORDER [None]
  - PAIN OF SKIN [None]
  - PRURITUS [None]
  - PYREXIA [None]
  - RASH GENERALISED [None]
  - RASH PAPULAR [None]
  - RASH PUSTULAR [None]
  - RASH VESICULAR [None]
  - SKIN ULCER [None]
  - STEVENS-JOHNSON SYNDROME [None]
  - VISUAL DISTURBANCE [None]
